FAERS Safety Report 11276175 (Version 1)
Quarter: 2015Q3

REPORT INFORMATION
  Report Type: Spontaneous
  Country: US (occurrence: None)
  Receive Date: 20150715
  Receipt Date: 20150715
  Transmission Date: 20151125
  Serious: No
  Sender: FDA-Public Use
  Company Number: None

PATIENT
  Age: 70 Year
  Sex: Female
  Weight: 68.04 kg

DRUGS (1)
  1. VIVELLE-DOT [Suspect]
     Active Substance: ESTRADIOL
     Indication: HORMONE REPLACEMENT THERAPY
     Dosage: EIGHT (8) PATCHES IN BOX. ONE(1) .1 PATCH APPLIED EVERY 3-4 DAYS.?TWICE A WEEK ONE (1), .1 APPLIED TO SKIN.?APPLIED TO SKIN ON HIP, THIGH, ABDOMIEN
     Route: 061
     Dates: start: 20150513, end: 20150524

REACTIONS (1)
  - Product distribution issue [None]

NARRATIVE: CASE EVENT DATE: 20150514
